FAERS Safety Report 11271211 (Version 1)
Quarter: 2015Q3

REPORT INFORMATION
  Report Type: Spontaneous
  Country: CN (occurrence: CN)
  Receive Date: 20150714
  Receipt Date: 20150714
  Transmission Date: 20151125
  Serious: Yes (Other)
  Sender: FDA-Public Use
  Company Number: CN-AMEDRA PHARMACEUTICALS LLC-2015AMD00092

PATIENT
  Age: 28 Year
  Sex: Female

DRUGS (1)
  1. ZENTEL [Suspect]
     Active Substance: ALBENDAZOLE
     Indication: HELMINTHIC INFECTION
     Dosage: 2 TABLETS, ONCE
     Route: 048
     Dates: start: 201505, end: 201505

REACTIONS (6)
  - Maternal exposure during pregnancy [None]
  - Abortion induced [Unknown]
  - Exposure during pregnancy [Recovered/Resolved]
  - Foetal death [None]
  - Pregnancy [None]
  - Diarrhoea [Recovered/Resolved]

NARRATIVE: CASE EVENT DATE: 201505
